FAERS Safety Report 10067557 (Version 1)
Quarter: 2014Q2

REPORT INFORMATION
  Report Type: Spontaneous
  Country: US (occurrence: None)
  Receive Date: 20140408
  Receipt Date: 20140408
  Transmission Date: 20141212
  Serious: Yes (Hospitalization)
  Sender: FDA-Public Use
  Company Number: None

PATIENT
  Age: 37 Year
  Sex: Female

DRUGS (1)
  1. TECFIDERA 120 MG BIOGEN IDEC [Suspect]
     Indication: MULTIPLE SCLEROSIS
     Route: 048
     Dates: start: 20140404, end: 20140404

REACTIONS (9)
  - Vomiting [None]
  - Nausea [None]
  - Gout [None]
  - Diarrhoea [None]
  - Rash generalised [None]
  - Poor peripheral circulation [None]
  - Skin discolouration [None]
  - Peripheral swelling [None]
  - Peripheral swelling [None]
